FAERS Safety Report 6372783-5 (Version None)
Quarter: 2009Q3

REPORT INFORMATION
  Report Type: 
  Country: None (occurrence: None)
  Receive Date: 20090924
  Receipt Date: 20081114
  Transmission Date: 20100115
  Serious: No
  Sender: FDA-Public Use
  Company Number: US-ASTRAZENECA-2008UW25499

PATIENT
  Age: 40 Year
  Sex: Female
  Weight: 65.8 kg

DRUGS (4)
  1. SEROQUEL [Suspect]
     Indication: BIPOLAR DISORDER
     Route: 048
     Dates: start: 20080301, end: 20081107
  2. SEROQUEL [Suspect]
     Indication: POST-TRAUMATIC STRESS DISORDER
     Route: 048
     Dates: start: 20080301, end: 20081107
  3. EFFEXOR [Concomitant]
  4. TRAZODONE HCL [Concomitant]

REACTIONS (8)
  - AMNESIA [None]
  - DRUG DOSE OMISSION [None]
  - DYSKINESIA [None]
  - HEADACHE [None]
  - INSOMNIA [None]
  - MOOD SWINGS [None]
  - PRURITUS [None]
  - TACHYPHRENIA [None]
